FAERS Safety Report 9770463 (Version 2)
Quarter: 2014Q2

REPORT INFORMATION
  Report Type: Spontaneous
  Country: US (occurrence: US)
  Receive Date: 20131218
  Receipt Date: 20140421
  Transmission Date: 20141212
  Serious: No
  Sender: FDA-Public Use
  Company Number: US-BIOGENIDEC-2013BI115423

PATIENT
  Sex: Female

DRUGS (11)
  1. TECFIDERA [Suspect]
     Indication: MULTIPLE SCLEROSIS
     Route: 048
  2. TECFIDERA [Suspect]
     Indication: MULTIPLE SCLEROSIS
     Route: 048
  3. AMPYRA (FAMPRIDINE) [Concomitant]
     Route: 048
  4. ASPIRIN (ACETYLSALICYLIC ACID) [Concomitant]
  5. MIDODRINE HCL [Concomitant]
  6. BACLOFEN [Concomitant]
  7. MIRAPEX (PRAMIPEXOLE DIHYDROCHLORIDE) [Concomitant]
  8. TYLENOL (PARACETAMOL) [Concomitant]
  9. CALCIUM + D (CALCIUM CARBONATE, COLECALCIFEROL) [Concomitant]
  10. CENTRUM SILVER [Concomitant]
  11. FISH OIL [Concomitant]

REACTIONS (2)
  - Gait disturbance [Recovered/Resolved]
  - Inhibitory drug interaction [Recovered/Resolved]
